FAERS Safety Report 11201539 (Version 2)
Quarter: 2015Q3

REPORT INFORMATION
  Report Type: Spontaneous
  Country: US (occurrence: None)
  Receive Date: 20150617
  Receipt Date: 20150706
  Transmission Date: 20151125
  Serious: Yes (Death, Hospitalization)
  Sender: FDA-Public Use
  Company Number: 2015RIT000024

PATIENT
  Age: 93 Year
  Sex: Male

DRUGS (2)
  1. IPRATROPIUM BROMIDE AND ALBUTEROL SULFATE INHALATION SOLUTION (SALBUTAMOL SULFATE, IPRATROPIUM BROMIDE) INHALATION SOLUTION, 0.5/3MG/3ML [Suspect]
     Active Substance: ALBUTEROL SULFATE\IPRATROPIUM BROMIDE
     Indication: CHRONIC OBSTRUCTIVE PULMONARY DISEASE
  2. MORPHINE [Concomitant]
     Active Substance: MORPHINE

REACTIONS (2)
  - Chronic obstructive pulmonary disease [None]
  - Cardiac failure congestive [None]

NARRATIVE: CASE EVENT DATE: 20150308
